FAERS Safety Report 7688191-0 (Version None)
Quarter: 2011Q3

REPORT INFORMATION
  Report Type: 
  Country: None (occurrence: None)
  Receive Date: 20110817
  Receipt Date: 20110502
  Transmission Date: 20111222
  Serious: No
  Sender: FDA-Public Use
  Company Number: US-GLAXOSMITHKLINE-A0926701A

PATIENT
  Sex: Female

DRUGS (1)
  1. VOTRIENT [Suspect]
     Indication: NEOPLASM MALIGNANT
     Dosage: 800MG PER DAY
     Route: 048
     Dates: start: 20110421

REACTIONS (6)
  - ELECTROCARDIOGRAM CHANGE [None]
  - ELECTROCARDIOGRAM AMBULATORY ABNORMAL [None]
  - FATIGUE [None]
  - CARDIAC FUNCTION TEST ABNORMAL [None]
  - WHITE BLOOD CELL COUNT DECREASED [None]
  - HEART RATE IRREGULAR [None]
